FAERS Safety Report 7220688-X (Version None)
Quarter: 2011Q1

REPORT INFORMATION
  Report Type: 
  Country: None (occurrence: None)
  Receive Date: 20110111
  Receipt Date: 20110105
  Transmission Date: 20110831
  Serious: Yes (Other)
  Sender: FDA-Public Use
  Company Number: US-RB-020085-10

PATIENT
  Age: 51 Year
  Sex: Female

DRUGS (1)
  1. SUBOXONE [Suspect]
     Indication: PRODUCT USED FOR UNKNOWN INDICATION
     Dosage: SUBLINGUAL FILM - DOSING INFORMATION UNKNOWN
     Route: 065
     Dates: start: 20100101

REACTIONS (5)
  - DRUG DEPENDENCE [None]
  - HEADACHE [None]
  - LOSS OF CONSCIOUSNESS [None]
  - VOMITING [None]
  - FEELING ABNORMAL [None]
